FAERS Safety Report 16361749 (Version 1)
Quarter: 2019Q2

REPORT INFORMATION
  Report Type: Spontaneous
  Country: US (occurrence: US)
  Receive Date: 20190419
  Receipt Date: 20190419
  Transmission Date: 20190711
  Serious: No
  Sender: FDA-Public Use
  Company Number: None

PATIENT
  Age: 53 Year
  Sex: Female

DRUGS (1)
  1. TALTZ [Suspect]
     Active Substance: IXEKIZUMAB
     Indication: PSORIASIS
     Dosage: THEN EVERY 4 WEEKS AS DIRECTED
     Route: 058
     Dates: start: 201903

REACTIONS (4)
  - Psoriasis [None]
  - Weight increased [None]
  - Increased appetite [None]
  - Fatigue [None]
